FAERS Safety Report 9216453 (Version 1)
Quarter: 2013Q2

REPORT INFORMATION
  Report Type: Spontaneous
  Country: US (occurrence: US)
  Receive Date: 20130408
  Receipt Date: 20130408
  Transmission Date: 20140414
  Serious: Yes (Other)
  Sender: FDA-Public Use
  Company Number: US-BAYER-2013-042064

PATIENT
  Age: 65 Year
  Sex: Female

DRUGS (2)
  1. BAYER ASPIRIN REGIMEN ADULT LOW STRENGTH [Suspect]
     Dosage: UNK
     Route: 048
  2. TRAMADOL [Concomitant]
     Dosage: UNK

REACTIONS (1)
  - Faeces discoloured [None]
